FAERS Safety Report 9122100 (Version 1)
Quarter: 2013Q1

REPORT INFORMATION
  Report Type: Spontaneous
  Country: JP (occurrence: JP)
  Receive Date: 20130227
  Receipt Date: 20130227
  Transmission Date: 20140127
  Serious: Yes (Hospitalization)
  Sender: FDA-Public Use
  Company Number: JP-B.I. PHARMACEUTICALS,INC./RIDGEFIELD-2013-BI-04911NB

PATIENT
  Age: 63 Year
  Sex: Male
  Weight: 67 kg

DRUGS (4)
  1. PRAZAXA [Suspect]
     Indication: ATRIAL FIBRILLATION
     Dosage: 220 MG
     Route: 048
     Dates: start: 20121229, end: 20121230
  2. PRAZAXA [Suspect]
     Indication: ATRIAL FIBRILLATION
     Dosage: 300 MG
     Route: 048
     Dates: start: 20121231, end: 20130215
  3. DOXAZOSIN [Concomitant]
     Dosage: NR
     Route: 065
  4. ZANTAC [Concomitant]
     Dosage: NR
     Route: 065

REACTIONS (1)
  - Cerebral artery stenosis [Recovered/Resolved]
